FAERS Safety Report 4285512-6 (Version None)
Quarter: 2004Q1

REPORT INFORMATION
  Report Type: 
  Country: None (occurrence: None)
  Receive Date: 20040130
  Receipt Date: 20040120
  Transmission Date: 20041129
  Serious: Yes (Hospitalization)
  Sender: FDA-Public Use
  Company Number: HQWYE504321JAN04

PATIENT
  Sex: Female

DRUGS (9)
  1. PHENERGAN [Suspect]
     Dosage: 25 MG TABLETS, ORAL
     Route: 048
  2. PREVACID [Concomitant]
  3. XANAX [Concomitant]
  4. TYLOX (OXYCODONE HYDROCHLORIDE/OXYCODONE) TEREHTHALATE/PARACETAMOL [Concomitant]
  5. LIPITOR [Concomitant]
  6. OCUFLOX [Concomitant]
  7. TYLENOL [Concomitant]
  8. OXYCODONE AND ACETAMINOPHEN [Concomitant]
  9. CELEBREX [Concomitant]

REACTIONS (5)
  - CONFUSIONAL STATE [None]
  - HYPONATRAEMIA [None]
  - INAPPROPRIATE ANTIDIURETIC HORMONE SECRETION [None]
  - INSOMNIA [None]
  - INTENTIONAL OVERDOSE [None]
